FAERS Safety Report 6893551-1 (Version None)
Quarter: 2010Q3

REPORT INFORMATION
  Report Type: 
  Country: None (occurrence: None)
  Receive Date: 20100731
  Receipt Date: 20091016
  Transmission Date: 20110219
  Serious: Yes (Hospitalization)
  Sender: FDA-Public Use
  Company Number: US-PFIZER INC-2009224225

PATIENT
  Sex: Male
  Weight: 114.74 kg

DRUGS (9)
  1. LIPITOR [Suspect]
     Indication: BLOOD CHOLESTEROL INCREASED
     Dosage: 20 MG, 1X/DAY
     Dates: start: 20090318
  2. CARDURA [Concomitant]
     Dosage: UNK
  3. ZYRTEC [Concomitant]
     Dosage: UNK
  4. ARTHROTEC [Concomitant]
     Dosage: UNK
  5. ALLOPURINOL [Concomitant]
     Dosage: UNK
  6. GLUCOPHAGE [Concomitant]
     Dosage: UNK
  7. AVAPRO [Concomitant]
     Dosage: UNK
  8. ACTOS [Concomitant]
     Dosage: UNK
  9. SULAR [Concomitant]
     Dosage: UNK

REACTIONS (3)
  - BACK PAIN [None]
  - DIZZINESS [None]
  - EAR CONGESTION [None]
